FAERS Safety Report 13680490 (Version 1)
Quarter: 2017Q2

REPORT INFORMATION
  Report Type: Spontaneous
  Country: CA (occurrence: CA)
  Receive Date: 20170623
  Receipt Date: 20170623
  Transmission Date: 20170830
  Serious: Yes (Other)
  Sender: FDA-Public Use
  Company Number: CA-CONCORDIA PHARMACEUTICALS INC.-GSH201706-003750

PATIENT
  Age: 71 Year
  Sex: Female

DRUGS (17)
  1. LYRICA [Concomitant]
     Active Substance: PREGABALIN
  2. SIMPONI [Concomitant]
     Active Substance: GOLIMUMAB
  3. CELLCEPT [Concomitant]
     Active Substance: MYCOPHENOLATE MOFETIL\MYCOPHENOLATE MOFETIL HYDROCHLORIDE
  4. PREDNISONE. [Concomitant]
     Active Substance: PREDNISONE
  5. HUMIRA [Concomitant]
     Active Substance: ADALIMUMAB
  6. REMICADE [Concomitant]
     Active Substance: INFLIXIMAB
  7. HYDROXYCHLOROQUINE [Concomitant]
     Active Substance: HYDROXYCHLOROQUINE
  8. PIROXICAM. [Concomitant]
     Active Substance: PIROXICAM
  9. METHOTREXATE SODIUM. [Concomitant]
     Active Substance: METHOTREXATE SODIUM
  10. PLAQUENIL [Suspect]
     Active Substance: HYDROXYCHLOROQUINE SULFATE
     Route: 048
  11. ARAVA [Suspect]
     Active Substance: LEFLUNOMIDE
     Indication: PRODUCT USE IN UNAPPROVED INDICATION
     Route: 048
  12. ENBREL [Concomitant]
     Active Substance: ETANERCEPT
  13. ORENCIA [Concomitant]
     Active Substance: ABATACEPT
  14. SULFASALAZINE. [Concomitant]
     Active Substance: SULFASALAZINE
  15. ACTEMRA [Concomitant]
     Active Substance: TOCILIZUMAB
  16. SODIUM AUROTHIOMALATE [Suspect]
     Active Substance: GOLD SODIUM THIOMALATE
     Route: 065
  17. RITUXAN [Concomitant]
     Active Substance: RITUXIMAB

REACTIONS (11)
  - Rheumatoid arthritis [Unknown]
  - Drug hypersensitivity [Unknown]
  - Sciatica [Unknown]
  - Treatment failure [Unknown]
  - Rash [Unknown]
  - Drug effect incomplete [Unknown]
  - Drug intolerance [Unknown]
  - Unevaluable event [Unknown]
  - Condition aggravated [Unknown]
  - Psoriatic arthropathy [Unknown]
  - Sinusitis [Unknown]
